FAERS Safety Report 14777570 (Version 2)
Quarter: 2018Q3

REPORT INFORMATION
  Report Type: Spontaneous
  Country: US (occurrence: US)
  Receive Date: 20180419
  Receipt Date: 20180709
  Transmission Date: 20181010
  Serious: Yes (Hospitalization, Other)
  Sender: FDA-Public Use
  Company Number: US-PFIZER INC-2018159613

PATIENT
  Sex: Female

DRUGS (3)
  1. IBRANCE [Suspect]
     Active Substance: PALBOCICLIB
     Dosage: 100 MG, CYCLIC (QD 21 DAYS OF28 DAYS)
     Route: 048
     Dates: start: 201803
  2. LETROZOLE. [Concomitant]
     Active Substance: LETROZOLE
     Indication: BREAST CANCER STAGE IV
     Dosage: 2.5 MG, 1X/DAY
     Dates: start: 20171026
  3. IBRANCE [Suspect]
     Active Substance: PALBOCICLIB
     Indication: BREAST CANCER METASTATIC
     Dosage: 125 MG, CYCLIC (QD 21 DAYS OF 28 DAYS )
     Route: 048
     Dates: start: 20171120

REACTIONS (3)
  - Neutropenia [Recovered/Resolved]
  - Influenza [Unknown]
  - Lymphopenia [Unknown]

NARRATIVE: CASE EVENT DATE: 20180312
